FAERS Safety Report 10428345 (Version 2)
Quarter: 2014Q4

REPORT INFORMATION
  Report Type: Spontaneous
  Country: BR (occurrence: BR)
  Receive Date: 20140903
  Receipt Date: 20141226
  Transmission Date: 20150528
  Serious: No
  Sender: FDA-Public Use
  Company Number: BR-ABBVIE-14P-020-1279084-00

PATIENT
  Sex: Female
  Weight: 60 kg

DRUGS (7)
  1. DEPAKENE [Suspect]
     Active Substance: VALPROIC ACID
     Indication: SEIZURE
     Route: 048
  2. DIOSMIN [Concomitant]
     Active Substance: DIOSMIN
     Indication: CARDIOVASCULAR DISORDER
     Route: 048
  3. SEPURIN [Concomitant]
     Indication: URINARY TRACT INFECTION
     Route: 048
     Dates: start: 201412
  4. DEPAKENE [Suspect]
     Active Substance: VALPROIC ACID
     Route: 048
  5. PROPANOLOL [Concomitant]
     Active Substance: PROPRANOLOL HYDROCHLORIDE
     Indication: HYPERTENSION
     Route: 048
  6. DEPAKENE [Suspect]
     Active Substance: VALPROIC ACID
     Indication: SEIZURE
     Dosage: FREQUENCY TEXT: AT THE HOSPITAL
     Route: 048
     Dates: start: 201406
  7. LAMOTRIGINE. [Concomitant]
     Active Substance: LAMOTRIGINE
     Indication: SEIZURE
     Route: 048
     Dates: start: 201411

REACTIONS (2)
  - Oral discomfort [Unknown]
  - Dysphagia [Unknown]

NARRATIVE: CASE EVENT DATE: 2014
